FAERS Safety Report 23084973 (Version 1)
Quarter: 2023Q4

REPORT INFORMATION
  Report Type: Spontaneous
  Country: US (occurrence: None)
  Receive Date: 20231019
  Receipt Date: 20231019
  Transmission Date: 20240109
  Serious: Yes (Hospitalization)
  Sender: FDA-Public Use
  Company Number: None

PATIENT
  Sex: Male
  Weight: 48.1 kg

DRUGS (3)
  1. CYCLOPHOSPHAMIDE [Suspect]
     Active Substance: CYCLOPHOSPHAMIDE
  2. DACTINOMYCIN [Suspect]
     Active Substance: DACTINOMYCIN
  3. VINCRISTINE SULFATE [Suspect]
     Active Substance: VINCRISTINE SULFATE

REACTIONS (5)
  - Melaena [None]
  - Thrombocytopenia [None]
  - Haemoglobin decreased [None]
  - Epigastric discomfort [None]
  - Gastritis [None]

NARRATIVE: CASE EVENT DATE: 20231011
